FAERS Safety Report 23923987 (Version 1)
Quarter: 2024Q2

REPORT INFORMATION
  Report Type: Spontaneous
  Country: US (occurrence: None)
  Receive Date: 20240530
  Receipt Date: 20240530
  Transmission Date: 20240716
  Serious: Yes (Disabling)
  Sender: FDA-Public Use
  Company Number: None

PATIENT
  Age: 41 Year
  Sex: Female
  Weight: 65.25 kg

DRUGS (4)
  1. CIPROFLOXACIN HYDROCHLORIDE [Suspect]
     Active Substance: CIPROFLOXACIN HYDROCHLORIDE
     Indication: Urinary tract infection
     Dosage: OTHER QUANTITY : 14 TABLET(S);?FREQUENCY : EVERY 12 HOURS;?
     Route: 048
     Dates: start: 20221231, end: 20231205
  2. LORYNA [Concomitant]
     Active Substance: DROSPIRENONE\ETHINYL ESTRADIOL
  3. VITAMINS [Concomitant]
     Active Substance: VITAMINS
  4. VITAMIN D [Concomitant]

REACTIONS (5)
  - Tendon pain [None]
  - Arthralgia [None]
  - Tendon pain [None]
  - Fatigue [None]
  - Heart rate increased [None]

NARRATIVE: CASE EVENT DATE: 20230105
